FAERS Safety Report 21290776 (Version 2)
Quarter: 2022Q4

REPORT INFORMATION
  Report Type: Report from Study
  Country: US (occurrence: US)
  Receive Date: 20220903
  Receipt Date: 20221103
  Transmission Date: 20230113
  Serious: Yes (Other)
  Sender: FDA-Public Use
  Company Number: US-NOVARTISPH-NVSC2022US198255

PATIENT
  Age: 78 Year
  Sex: Female

DRUGS (1)
  1. ENTRESTO [Suspect]
     Active Substance: SACUBITRIL\VALSARTAN
     Indication: Product used for unknown indication
     Dosage: UNK
     Route: 065

REACTIONS (11)
  - Arrhythmia [Unknown]
  - Blindness [Unknown]
  - Decreased activity [Unknown]
  - Weight increased [Unknown]
  - Dysphagia [Unknown]
  - Renal disorder [Unknown]
  - Balance disorder [Unknown]
  - Blood pressure fluctuation [Unknown]
  - Heart rate irregular [Unknown]
  - Heart rate decreased [Unknown]
  - Blood potassium decreased [Unknown]
